FAERS Safety Report 10309353 (Version 2)
Quarter: 2014Q3

REPORT INFORMATION
  Report Type: Report from Study
  Country: US (occurrence: US)
  Receive Date: 20140716
  Receipt Date: 20140716
  Transmission Date: 20150326
  Serious: Yes (Congenital Anomaly)
  Sender: FDA-Public Use
  Company Number: US-ABBVIE-10P-163-0684339-00

PATIENT
  Age: 1 Month
  Sex: Female

DRUGS (1)
  1. HUMIRA [Suspect]
     Active Substance: ADALIMUMAB
     Indication: MATERNAL EXPOSURE TIMING UNSPECIFIED
     Route: 064

REACTIONS (6)
  - Pulmonary artery stenosis congenital [Unknown]
  - Foetal exposure during pregnancy [Unknown]
  - Cardiac murmur [Unknown]
  - Premature baby [Unknown]
  - Patent ductus arteriosus [Recovered/Resolved]
  - Large intestinal haemorrhage [Unknown]

NARRATIVE: CASE EVENT DATE: 20100416
